FAERS Safety Report 8228719-5 (Version None)
Quarter: 2012Q1

REPORT INFORMATION
  Report Type: 
  Country: None (occurrence: None)
  Receive Date: 20120322
  Receipt Date: 20120313
  Transmission Date: 20120608
  Serious: Yes (Hospitalization)
  Sender: FDA-Public Use
  Company Number: FI-ASTRAZENECA-2012SE17762

PATIENT
  Age: 76 Year
  Sex: Female

DRUGS (2)
  1. PREDNISOLONE [Concomitant]
     Indication: SJOGREN'S SYNDROME
     Route: 048
  2. VIMOVO [Suspect]
     Indication: PAIN
     Route: 048
     Dates: start: 20111231, end: 20120120

REACTIONS (1)
  - CUTANEOUS LUPUS ERYTHEMATOSUS [None]
